FAERS Safety Report 10540704 (Version 1)
Quarter: 2014Q4

REPORT INFORMATION
  Report Type: Spontaneous
  Country: US (occurrence: None)
  Receive Date: 20141023
  Receipt Date: 20141023
  Transmission Date: 20150529
  Serious: No
  Sender: FDA-Public Use
  Company Number: None

PATIENT
  Age: 60 Year
  Sex: Female
  Weight: 86.18 kg

DRUGS (1)
  1. BYDUREON [Suspect]
     Active Substance: EXENATIDE
     Indication: DIABETES MELLITUS MANAGEMENT
     Dosage: 2MG, WEEKLY, GIVEN INTO/UNDER THE SKIN
     Dates: start: 20140924, end: 20141008

REACTIONS (1)
  - Injection site mass [None]

NARRATIVE: CASE EVENT DATE: 20141008
